FAERS Safety Report 7450881-2 (Version None)
Quarter: 2011Q2

REPORT INFORMATION
  Report Type: 
  Country: None (occurrence: None)
  Receive Date: 20110502
  Receipt Date: 20110427
  Transmission Date: 20111010
  Serious: Yes (Life-Threatening, Hospitalization, Other)
  Sender: FDA-Public Use
  Company Number: GB-PFIZER INC-2007055153

PATIENT
  Age: 62 Year
  Sex: Male

DRUGS (9)
  1. ALPRAZOLAM [Suspect]
     Indication: DEPRESSED MOOD
     Dosage: UNK
  2. LORAZEPAM [Suspect]
     Dosage: 6 MG PER DAY
  3. ZOPICLONE [Suspect]
     Indication: DRUG DEPENDENCE
     Dosage: 7.5 MG, 1X/DAY AT NIGHT
  4. DIAZEPAM [Suspect]
     Indication: ANXIETY
     Dosage: 2 MG IN THE MORNING AND 5 MG AT NIGHT
  5. DIAZEPAM [Suspect]
     Indication: DRUG DEPENDENCE
     Dosage: 10 MG, 1X/DAY
  6. LORAZEPAM [Suspect]
     Indication: ANXIETY
     Dosage: 1MG IN THE MORNING AND 0.5 MG IN THE EVENING
  7. LORAZEPAM [Suspect]
     Dosage: 1 MG, 2X/DAY
  8. TEMAZ [Suspect]
     Indication: ANXIETY
  9. FLUOXETINE [Concomitant]
     Indication: DEPRESSION
     Dosage: 20 MG, 1X/DAY

REACTIONS (13)
  - FEAR [None]
  - PSYCHIATRIC SYMPTOM [None]
  - SLEEP DISORDER [None]
  - TREATMENT NONCOMPLIANCE [None]
  - SUICIDE ATTEMPT [None]
  - EUPHORIC MOOD [None]
  - INTENTIONAL OVERDOSE [None]
  - DRUG DEPENDENCE [None]
  - AGITATION [None]
  - ANXIETY [None]
  - DRUG WITHDRAWAL SYNDROME [None]
  - PARAESTHESIA [None]
  - SELF INJURIOUS BEHAVIOUR [None]
